FAERS Safety Report 18504106 (Version 2)
Quarter: 2022Q4

REPORT INFORMATION
  Report Type: Spontaneous
  Country: CA (occurrence: CA)
  Receive Date: 20201113
  Receipt Date: 20221222
  Transmission Date: 20230113
  Serious: Yes (Hospitalization)
  Sender: FDA-Public Use
  Company Number: CA-SA-2020SA314347

PATIENT
  Age: 82 Year
  Sex: Female

DRUGS (2)
  1. LOVENOX [Suspect]
     Active Substance: ENOXAPARIN SODIUM
     Indication: Thrombosis prophylaxis
     Dosage: 30 MG, Q12H
     Route: 058
  2. NAPROXEN [Suspect]
     Active Substance: NAPROXEN
     Indication: Procedural pain
     Dosage: 500 MG, BID
     Route: 065

REACTIONS (2)
  - Faeces discoloured [Unknown]
  - Haemoglobin decreased [Unknown]
